FAERS Safety Report 23448767 (Version 1)
Quarter: 2024Q1

REPORT INFORMATION
  Report Type: Spontaneous
  Country: CN (occurrence: CN)
  Receive Date: 20240127
  Receipt Date: 20240127
  Transmission Date: 20240410
  Serious: Yes (Other)
  Sender: FDA-Public Use
  Company Number: CN-002147023-NVSC2024CN015978

PATIENT
  Age: 31 Year
  Sex: Male
  Weight: 70 kg

DRUGS (3)
  1. ENTRESTO [Suspect]
     Active Substance: SACUBITRIL\VALSARTAN
     Indication: Symptomatic treatment
     Dosage: 50 MG, BID
     Route: 048
     Dates: start: 20231101, end: 20231108
  2. FUROSEMIDE [Concomitant]
     Active Substance: FUROSEMIDE
     Indication: Adjuvant therapy
     Dosage: 10 MG, QD
     Route: 048
     Dates: start: 20231111, end: 20231114
  3. DAPAGLIFLOZIN [Concomitant]
     Active Substance: DAPAGLIFLOZIN
     Indication: Symptomatic treatment
     Dosage: 10 MG, QD
     Route: 048
     Dates: start: 20231101, end: 20231123

REACTIONS (1)
  - Hyperkalaemia [Recovering/Resolving]

NARRATIVE: CASE EVENT DATE: 20231103
